FAERS Safety Report 7331285-X (Version None)
Quarter: 2011Q1

REPORT INFORMATION
  Report Type: 
  Country: None (occurrence: None)
  Receive Date: 20110304
  Receipt Date: 20110223
  Transmission Date: 20110831
  Serious: Yes (Hospitalization)
  Sender: FDA-Public Use
  Company Number: US-JNJFOC-20090905888

PATIENT
  Sex: Female
  Weight: 69.85 kg

DRUGS (6)
  1. REMICADE [Suspect]
     Dosage: 2 INFUSIONS
     Route: 042
     Dates: start: 20020104, end: 20081216
  2. MESALAMINE [Concomitant]
     Indication: CROHN'S DISEASE
  3. REMICADE [Suspect]
     Dosage: 10 INFUSIONS
     Route: 042
     Dates: start: 20020104, end: 20081216
  4. REMICADE [Suspect]
     Indication: CROHN'S DISEASE
     Route: 042
     Dates: start: 20020104, end: 20081216
  5. REMICADE [Suspect]
     Route: 042
     Dates: start: 20020104, end: 20081216
  6. AZATHIOPRINE SODIUM [Suspect]
     Indication: CROHN'S DISEASE

REACTIONS (1)
  - HERPES ZOSTER [None]
